FAERS Safety Report 4734039-3 (Version None)
Quarter: 2005Q3

REPORT INFORMATION
  Report Type: 
  Country: None (occurrence: None)
  Receive Date: 20050721
  Receipt Date: 20050509
  Transmission Date: 20060218
  Serious: No
  Sender: FDA-Public Use
  Company Number: 2005SP000640

PATIENT
  Age: 68 Year
  Sex: Female
  Weight: 65.7716 kg

DRUGS (2)
  1. LUNESTA [Suspect]
     Indication: PANIC ATTACK
     Dosage: 2 MG;X1;ORAL
     Route: 048
     Dates: start: 20050507, end: 20050507
  2. AMBIEN [Concomitant]

REACTIONS (1)
  - PANIC ATTACK [None]
